FAERS Safety Report 4438066-5 (Version None)
Quarter: 2004Q3

REPORT INFORMATION
  Report Type: 
  Country: None (occurrence: None)
  Receive Date: 20040831
  Receipt Date: 20040513
  Transmission Date: 20050211
  Serious: Yes (Hospitalization)
  Sender: FDA-Public Use
  Company Number: US-GLAXOSMITHKLINE-A0510764A

PATIENT
  Age: 41 Year
  Sex: Female
  Weight: 70.9 kg

DRUGS (5)
  1. WELLBUTRIN [Suspect]
     Indication: DEPRESSION
     Dosage: 300MG PER DAY
     Route: 048
     Dates: start: 20030924, end: 20040311
  2. CENESTIN [Suspect]
     Indication: DRUG USE FOR UNKNOWN INDICATION
     Dosage: 2.5MG PER DAY
  3. SINGULAIR [Concomitant]
  4. LEVO-THYROXIN [Concomitant]
     Dosage: .025MG PER DAY
  5. HYDROCHLOROTHIAZIDE [Concomitant]
     Dosage: 12.5MG PER DAY

REACTIONS (3)
  - AMNESIA [None]
  - GRAND MAL CONVULSION [None]
  - INCONTINENCE [None]
